FAERS Safety Report 20479423 (Version 2)
Quarter: 2022Q1

REPORT INFORMATION
  Report Type: Spontaneous
  Country: RU (occurrence: RU)
  Receive Date: 20220216
  Receipt Date: 20220222
  Transmission Date: 20220423
  Serious: Yes (Hospitalization, Other)
  Sender: FDA-Public Use
  Company Number: RU-ABBVIE-22K-251-4279262-00

PATIENT

DRUGS (4)
  1. VENETOCLAX [Suspect]
     Active Substance: VENETOCLAX
     Indication: Acute myeloid leukaemia
     Dosage: DAY 1, CYCLE 1
     Route: 048
  2. VENETOCLAX [Suspect]
     Active Substance: VENETOCLAX
     Dosage: DAY 2, CYCLE 1
     Route: 048
  3. VENETOCLAX [Suspect]
     Active Substance: VENETOCLAX
     Dosage: DAY 3, CYCLE 1, UPTO 28 DAYS
     Route: 048
  4. AZACITIDINE [Suspect]
     Active Substance: AZACITIDINE
     Indication: Acute myeloid leukaemia
     Dosage: DAYS 1 TO 7 OF EACH 28-DAY CYCLE
     Route: 065

REACTIONS (5)
  - Atrial fibrillation [Unknown]
  - Pneumonia [Unknown]
  - Febrile neutropenia [Unknown]
  - Anaemia [Unknown]
  - Sepsis [Unknown]
